FAERS Safety Report 15198153 (Version 1)
Quarter: 2018Q3

REPORT INFORMATION
  Report Type: Spontaneous
  Country: DE (occurrence: DE)
  Receive Date: 20180725
  Receipt Date: 20180725
  Transmission Date: 20181010
  Serious: Yes (Hospitalization)
  Sender: FDA-Public Use
  Company Number: PHHY2018DE050129

PATIENT
  Age: 57 Year
  Sex: Female
  Weight: 66 kg

DRUGS (10)
  1. PACLITAXEL. [Suspect]
     Active Substance: PACLITAXEL
     Dosage: 311.5 MG, Q3W (DAILY DOSE: 311.5 MG MILLGRAM(S) EVERY 3 WEEKS)
     Route: 042
     Dates: start: 20150324
  2. CAPECITABINE. [Concomitant]
     Active Substance: CAPECITABINE
     Dosage: 2000 MG, Q3W (DAILY DOSE: 2000 MG MILLGRAM(S) EVERY 3 WEEKS)
     Route: 048
     Dates: start: 20150428
  3. CAPECITABINE. [Concomitant]
     Active Substance: CAPECITABINE
     Dosage: 2000 MG, Q3W (DAILY DOSE: 2000 MG MILLGRAM(S) EVERY 3 WEEKS)
     Route: 048
     Dates: start: 20150511
  4. AMLODIPIN [Concomitant]
     Active Substance: AMLODIPINE BESYLATE
     Indication: HYPERTENSION
     Dosage: 5 MG, QD (DAILY DOSE: 5 MG MILLGRAM(S) EVERY DAYS)
     Route: 048
     Dates: start: 20150122
  5. CAPECITABINE. [Concomitant]
     Active Substance: CAPECITABINE
     Indication: BREAST CANCER
     Dosage: 2000 MG, Q3W (FROM D1?D14 OF EACH CYCLE)
     Route: 048
     Dates: start: 20150407
  6. PACLITAXEL. [Suspect]
     Active Substance: PACLITAXEL
     Indication: BREAST CANCER
     Dosage: 311.5 MG, Q3W (DAILY DOSE: 311.5 MG MILLGRAM(S) EVERY 3 WEEKS)
     Route: 042
     Dates: start: 20150303
  7. AVASTIN [Suspect]
     Active Substance: BEVACIZUMAB
     Indication: BREAST CANCER
     Dosage: 990 MG, Q3W (DATE OF LAST DOSE PRIOR TO SAE: 05/MAY/2015)
     Route: 042
     Dates: start: 20150303
  8. L?THYROXINE [Concomitant]
     Active Substance: LEVOTHYROXINE
     Indication: THYROID DISORDER
     Dosage: 125 UG, QD (DAILY DOSE: 125 ?G MICROGRAM(S) EVERY DAYS)
     Route: 048
  9. CAPECITABINE. [Concomitant]
     Active Substance: CAPECITABINE
     Dosage: 2000 MG, Q3W (FROM D1?D14 OF EACH CYCLE)
     Route: 048
     Dates: start: 20150420
  10. RAMIPRIL. [Concomitant]
     Active Substance: RAMIPRIL
     Indication: HYPERTENSION
     Dosage: 5 MG, QD (DAILY DOSE: 5 MG MILLGRAM(S) EVERY DAYS)
     Route: 048
     Dates: start: 20150122

REACTIONS (8)
  - Arrhythmia [Recovered/Resolved]
  - Ureteric stenosis [Recovered/Resolved]
  - Biopsy skin [Recovered/Resolved]
  - Metastases to skin [Recovered/Resolved]
  - General physical health deterioration [Recovered/Resolved]
  - Pseudocyst [Recovered/Resolved]
  - Drug intolerance [Recovered/Resolved]
  - Hydronephrosis [Recovered/Resolved]

NARRATIVE: CASE EVENT DATE: 20150304
